FAERS Safety Report 21144736 (Version 1)
Quarter: 2022Q3

REPORT INFORMATION
  Report Type: Spontaneous
  Country: US (occurrence: None)
  Receive Date: 20220728
  Receipt Date: 20220728
  Transmission Date: 20221027
  Serious: No
  Sender: FDA-Public Use
  Company Number: US-ROCHE-3001996

PATIENT
  Sex: Female
  Weight: 69.008 kg

DRUGS (1)
  1. PERJETA [Suspect]
     Active Substance: PERTUZUMAB
     Indication: Neoplasm malignant
     Dosage: 420 MC/14ML SDV
     Route: 042
     Dates: start: 20211022

REACTIONS (1)
  - Infection [Unknown]
